FAERS Safety Report 5235380-0 (Version None)
Quarter: 2007Q1

REPORT INFORMATION
  Report Type: 
  Country: None (occurrence: None)
  Receive Date: 20070209
  Receipt Date: 20070209
  Transmission Date: 20070707
  Serious: No
  Sender: FDA-Public Use
  Company Number: None

PATIENT

DRUGS (2)
  1. IBUPROFEN [Suspect]
     Dosage: SUSPENSION  CUP, UNIT-DOSE 5 ML
  2. VALPROIC ACID SYRUP [Suspect]
     Dosage: SYRUP  CUP, UNIT-DOSE 5 ML

REACTIONS (3)
  - DRUG DISPENSING ERROR [None]
  - MEDICATION ERROR [None]
  - WRONG DRUG ADMINISTERED [None]
